FAERS Safety Report 19581248 (Version 3)
Quarter: 2021Q3

REPORT INFORMATION
  Report Type: Report from Study
  Country: US (occurrence: US)
  Receive Date: 20210720
  Receipt Date: 20210813
  Transmission Date: 20211014
  Serious: Yes (Other)
  Sender: FDA-Public Use
  Company Number: NVSC2021US153230

PATIENT
  Age: 51 Year
  Sex: Female
  Weight: 140.3 kg

DRUGS (5)
  1. ENTRESTO [Suspect]
     Active Substance: SACUBITRIL\VALSARTAN
     Dosage: 1 DF, BID(49/51 MG)
     Route: 048
     Dates: start: 20210622
  2. ENTRESTO [Suspect]
     Active Substance: SACUBITRIL\VALSARTAN
     Indication: CARDIAC FAILURE
     Dosage: 1 DF, Q12H(49/51 MG)
     Route: 048
     Dates: start: 20210512
  3. WATER PILLS [Concomitant]
     Active Substance: UNSPECIFIED INGREDIENT
     Indication: PRODUCT USED FOR UNKNOWN INDICATION
     Dosage: UNK
     Route: 065
  4. ENTRESTO [Suspect]
     Active Substance: SACUBITRIL\VALSARTAN
     Dosage: 100 MG, BID (49/51 MG)
     Route: 048
     Dates: start: 20210519
  5. ENTRESTO [Suspect]
     Active Substance: SACUBITRIL\VALSARTAN
     Dosage: 1 DF, BID(24/26 MG)
     Route: 065
     Dates: start: 20210520

REACTIONS (10)
  - Product dose omission issue [Unknown]
  - Anxiety [Unknown]
  - Concomitant disease aggravated [Unknown]
  - Pruritus [Unknown]
  - Cellulitis [Unknown]
  - Lymphoedema [Recovering/Resolving]
  - Rash [Unknown]
  - Memory impairment [Unknown]
  - Throat clearing [Unknown]
  - Weight decreased [Unknown]

NARRATIVE: CASE EVENT DATE: 20210616
